FAERS Safety Report 8187054-4 (Version None)
Quarter: 2012Q1

REPORT INFORMATION
  Report Type: 
  Country: None (occurrence: None)
  Receive Date: 20120302
  Receipt Date: 20110518
  Transmission Date: 20120608
  Serious: Yes (Death)
  Sender: FDA-Public Use
  Company Number: DKLU1077168

PATIENT
  Age: 30 Year
  Sex: Female

DRUGS (6)
  1. DRONABINOL [Suspect]
     Indication: PRODUCT USED FOR UNKNOWN INDICATION
  2. DIAZEPAM [Suspect]
     Indication: PRODUCT USED FOR UNKNOWN INDICATION
  3. NORDIAZEPAM (NORDAZEPAM) [Suspect]
     Indication: PRODUCT USED FOR UNKNOWN INDICATION
  4. TRAMADOL HCL [Suspect]
     Indication: PRODUCT USED FOR UNKNOWN INDICATION
  5. DESOXYN [Suspect]
     Indication: PRODUCT USED FOR UNKNOWN INDICATION
  6. METHYLENEDIOXYMETHAPHETAMINE (METHYLENEDIOXYMETHAMPHETAMINE) [Suspect]
     Indication: PRODUCT USED FOR UNKNOWN INDICATION

REACTIONS (2)
  - DRUG INTERACTION [None]
  - ASPHYXIA [None]
